FAERS Safety Report 9870342 (Version 1)
Quarter: 2014Q1

REPORT INFORMATION
  Report Type: Spontaneous
  Country: US (occurrence: None)
  Receive Date: 20140204
  Receipt Date: 20140204
  Transmission Date: 20141002
  Serious: No
  Sender: FDA-Public Use
  Company Number: None

PATIENT
  Age: 32 Year
  Sex: Female
  Weight: 45.36 kg

DRUGS (1)
  1. ADDERALL TABLETS [Suspect]
     Indication: ATTENTION DEFICIT/HYPERACTIVITY DISORDER
     Route: 048
     Dates: start: 20140122, end: 20140203

REACTIONS (4)
  - Disturbance in attention [None]
  - Feeling abnormal [None]
  - Irritability [None]
  - Heart rate increased [None]
